FAERS Safety Report 16134381 (Version 1)
Quarter: 2019Q1

REPORT INFORMATION
  Report Type: Spontaneous
  Country: US (occurrence: US)
  Receive Date: 20190329
  Receipt Date: 20190329
  Transmission Date: 20190418
  Serious: No
  Sender: FDA-Public Use
  Company Number: US-TEVA-2019-US-1021277

PATIENT
  Sex: Female
  Weight: 124.85 kg

DRUGS (8)
  1. HUMIRA [Concomitant]
     Active Substance: ADALIMUMAB
     Indication: AUTOIMMUNE DISORDER
     Dosage: 40MG/0.8ML, AUTOINJECT EVERY 2 WEEKS
  2. BACLOFEN. [Concomitant]
     Active Substance: BACLOFEN
     Indication: NERVE ROOT INJURY LUMBAR
     Dosage: 3.3333 MILLIGRAM DAILY;
  3. HYDROCODONE BITARTRATE AND ACETAMINOPHEN [Suspect]
     Active Substance: ACETAMINOPHEN\HYDROCODONE BITARTRATE
     Indication: PAIN
     Route: 065
  4. LYRICA [Suspect]
     Active Substance: PREGABALIN
     Indication: PAIN
  5. METFORMIN [Concomitant]
     Active Substance: METFORMIN HYDROCHLORIDE
     Indication: DIABETES MELLITUS
     Dosage: 2000 MILLIGRAM DAILY;
  6. BACLOFEN. [Concomitant]
     Active Substance: BACLOFEN
     Indication: PAIN
  7. HYDROCODONE BITARTRATE AND ACETAMINOPHEN [Suspect]
     Active Substance: ACETAMINOPHEN\HYDROCODONE BITARTRATE
     Indication: NERVE ROOT INJURY LUMBAR
  8. LYRICA [Suspect]
     Active Substance: PREGABALIN
     Indication: NERVE ROOT INJURY LUMBAR
     Dosage: 150 MILLIGRAM DAILY;
     Route: 048
     Dates: start: 20171019

REACTIONS (6)
  - Drug effect decreased [Unknown]
  - Dry skin [Unknown]
  - Middle insomnia [Unknown]
  - Dry mouth [Unknown]
  - Feeling abnormal [Not Recovered/Not Resolved]
  - Soliloquy [Unknown]
